FAERS Safety Report 20204472 (Version 2)
Quarter: 2021Q4

REPORT INFORMATION
  Report Type: Report from Study
  Country: JP (occurrence: JP)
  Receive Date: 20211220
  Receipt Date: 20211230
  Transmission Date: 20220303
  Serious: Yes (Hospitalization, Other)
  Sender: FDA-Public Use
  Company Number: JP-CELLTRION INC.-2019JP024885

PATIENT

DRUGS (18)
  1. INFLIXIMAB-DYYB [Suspect]
     Active Substance: INFLIXIMAB-DYYB
     Indication: Rheumatoid arthritis
     Dosage: 141 MG (WEIGHT: 47.7 KG)
     Route: 041
     Dates: start: 20190406, end: 20190406
  2. INFLIXIMAB-DYYB [Suspect]
     Active Substance: INFLIXIMAB-DYYB
     Dosage: 150 MG (WEIGHT: 50 KG)
     Route: 041
     Dates: start: 20190601, end: 20190601
  3. INFLIXIMAB-DYYB [Suspect]
     Active Substance: INFLIXIMAB-DYYB
     Dosage: 134.1 MG (WEIGHT: 44.7 KG)
     Route: 041
     Dates: start: 20190803, end: 20190803
  4. INFLIXIMAB-DYYB [Suspect]
     Active Substance: INFLIXIMAB-DYYB
     Dosage: 133.8 MG (WEIGHT: 44.6 KG)
     Route: 041
     Dates: start: 20191005, end: 20191005
  5. INFLIXIMAB-DYYB [Suspect]
     Active Substance: INFLIXIMAB-DYYB
     Dosage: 131.7 MG (WEIGHT: 43.9 KG)
     Route: 041
     Dates: start: 20200404, end: 20200404
  6. INFLIXIMAB-DYYB [Suspect]
     Active Substance: INFLIXIMAB-DYYB
     Dosage: 133.8 MG (WEIGHT: 133.8 KG)
     Route: 041
     Dates: start: 20210403, end: 20210403
  7. METHOTREXATE [Concomitant]
     Active Substance: METHOTREXATE
     Indication: Rheumatoid arthritis
     Dosage: 2 MG, PRN
     Route: 048
  8. FOLIC ACID [Concomitant]
     Active Substance: FOLIC ACID
     Indication: Rheumatoid arthritis
     Dosage: 5 MG, QD
     Route: 048
  9. EBASTINE [Concomitant]
     Active Substance: EBASTINE
     Indication: Rheumatoid arthritis
     Dosage: 10 MG, QD
     Route: 048
  10. CYTOTEC [Concomitant]
     Active Substance: MISOPROSTOL
     Indication: Rheumatoid arthritis
     Dosage: 200 MG, BID
     Route: 048
  11. CYTOTEC [Concomitant]
     Active Substance: MISOPROSTOL
     Dosage: 400 MG, DAILY
     Route: 048
  12. SALICYLIC ACID PLASTER [Concomitant]
     Indication: Rheumatoid arthritis
     Dosage: 1 APPLICATORFUL PRN
     Route: 062
  13. HERBALS [Concomitant]
     Active Substance: HERBALS
     Indication: Rheumatoid arthritis
     Dosage: EXTRACT GRANULES, 3 MG ONCE A DAY
     Route: 048
  14. HERBALS [Concomitant]
     Active Substance: HERBALS
     Dosage: 3 GRAM, DAILY
     Route: 048
  15. FELBINAC [Concomitant]
     Active Substance: FELBINAC
     Indication: Rheumatoid arthritis
     Dosage: 1 APPLICATORFUL, PRN
     Route: 062
  16. RHEUMATREX [Concomitant]
     Active Substance: METHOTREXATE SODIUM
     Indication: Rheumatoid arthritis
     Dosage: 2 MG, PRN
     Route: 048
  17. ESFLURBIPROFEN\HERBALS [Concomitant]
     Active Substance: ESFLURBIPROFEN\HERBALS
     Indication: Rheumatoid arthritis
     Dosage: 1 APPLICATORFUL. PRN
     Route: 062
  18. PREDNISOLONE [Concomitant]
     Active Substance: PREDNISOLONE
     Indication: Rheumatoid arthritis
     Dosage: 5 MG, QD
     Route: 048

REACTIONS (4)
  - Subdural haematoma [Recovered/Resolved]
  - Subdural haematoma [Recovered/Resolved]
  - Oral herpes [Recovered/Resolved]
  - Underdose [Unknown]

NARRATIVE: CASE EVENT DATE: 20190803
